FAERS Safety Report 12351975 (Version 2)
Quarter: 2016Q3

REPORT INFORMATION
  Report Type: Spontaneous
  Country: US (occurrence: US)
  Receive Date: 20160510
  Receipt Date: 20160721
  Transmission Date: 20161109
  Serious: Yes (Other)
  Sender: FDA-Public Use
  Company Number: US-TEVA-656951USA

PATIENT
  Age: 16 Year
  Sex: Male

DRUGS (1)
  1. ZECUITY [Suspect]
     Active Substance: SUMATRIPTAN SUCCINATE
     Indication: MIGRAINE
     Route: 062
     Dates: start: 20160501, end: 20160501

REACTIONS (12)
  - Application site erythema [Unknown]
  - Drug administered to patient of inappropriate age [Unknown]
  - Product physical issue [Unknown]
  - Application site reaction [Recovered/Resolved]
  - Application site burn [Recovered/Resolved]
  - Incorrect drug administration duration [Recovered/Resolved]
  - Product leakage [Unknown]
  - Application site irritation [Recovered/Resolved]
  - Application site pain [Recovered/Resolved]
  - Sunburn [Recovered/Resolved]
  - Drug ineffective [Unknown]
  - Application site discolouration [Recovered/Resolved]

NARRATIVE: CASE EVENT DATE: 20160501
